FAERS Safety Report 6386576-6 (Version None)
Quarter: 2009Q4

REPORT INFORMATION
  Report Type: 
  Country: None (occurrence: None)
  Receive Date: 20091002
  Receipt Date: 20090403
  Transmission Date: 20100525
  Serious: No
  Sender: FDA-Public Use
  Company Number: US-ASTRAZENECA-2009UW08542

PATIENT
  Age: 58 Year
  Sex: Female

DRUGS (3)
  1. ARIMIDEX [Suspect]
     Indication: BREAST CANCER FEMALE
     Route: 048
     Dates: start: 20090101
  2. MULTI-VITAMIN [Concomitant]
  3. DETROL LA [Concomitant]

REACTIONS (3)
  - CHAPPED LIPS [None]
  - LIP BLISTER [None]
  - LIP SWELLING [None]
